FAERS Safety Report 9868079 (Version 2)
Quarter: 2014Q1

REPORT INFORMATION
  Report Type: Spontaneous
  Country: US (occurrence: US)
  Receive Date: 20140204
  Receipt Date: 20140204
  Transmission Date: 20141002
  Serious: Yes (Death, Hospitalization)
  Sender: FDA-Public Use
  Company Number: US-GLAXOSMITHKLINE-A0802186A

PATIENT
  Age: 62 Year
  Sex: Female

DRUGS (8)
  1. AVANDIA [Suspect]
     Indication: TYPE 2 DIABETES MELLITUS
     Dosage: 8MG PER DAY
     Route: 048
     Dates: start: 20001117, end: 20071025
  2. PRAVACHOL [Concomitant]
  3. ZESTRIL [Concomitant]
  4. PREVACID [Concomitant]
  5. LEXAPRO [Concomitant]
  6. HUMULIN [Concomitant]
  7. GLUCOPHAGE [Concomitant]
  8. CORDARONE [Concomitant]

REACTIONS (7)
  - Cardiac failure congestive [Unknown]
  - Coronary artery disease [Unknown]
  - Cerebrovascular accident [Unknown]
  - Myocardial infarction [Unknown]
  - Transient ischaemic attack [Unknown]
  - Hypoxia [Fatal]
  - Cerebral infarction [Unknown]
